FAERS Safety Report 8994035 (Version 2)
Quarter: 2013Q1

REPORT INFORMATION
  Report Type: Spontaneous
  Country: US (occurrence: US)
  Receive Date: 20130102
  Receipt Date: 20130305
  Transmission Date: 20140127
  Serious: No
  Sender: FDA-Public Use
  Company Number: US-AMGEN-USASP2012082515

PATIENT
  Age: 58 Year
  Sex: Male
  Weight: 74.38 kg

DRUGS (1)
  1. ENBREL [Suspect]
     Indication: PSORIATIC ARTHROPATHY
     Dosage: 50 MG, QWK
     Route: 058
     Dates: start: 201003

REACTIONS (2)
  - Local swelling [Not Recovered/Not Resolved]
  - Varicose vein [Not Recovered/Not Resolved]
